FAERS Safety Report 17558225 (Version 1)
Quarter: 2020Q1

REPORT INFORMATION
  Report Type: Spontaneous
  Country: US (occurrence: US)
  Receive Date: 20200319
  Receipt Date: 20200319
  Transmission Date: 20200409
  Serious: Yes (Hospitalization)
  Sender: FDA-Public Use
  Company Number: US-ROCHE-2569122

PATIENT
  Age: 38 Year
  Sex: Male

DRUGS (1)
  1. HEMLIBRA [Suspect]
     Active Substance: EMICIZUMAB-KXWH
     Indication: FACTOR VIII DEFICIENCY
     Dosage: 105 MG/0.7 ML
     Route: 058
     Dates: start: 20200224

REACTIONS (9)
  - Fall [Unknown]
  - Vomiting [Unknown]
  - Lip injury [Unknown]
  - Limb injury [Unknown]
  - Insomnia [Unknown]
  - Decreased appetite [Unknown]
  - Seizure [Unknown]
  - Nausea [Unknown]
  - Face injury [Unknown]

NARRATIVE: CASE EVENT DATE: 20200306
